FAERS Safety Report 7212261-4 (Version None)
Quarter: 2011Q1

REPORT INFORMATION
  Report Type: 
  Country: None (occurrence: None)
  Receive Date: 20110106
  Receipt Date: 20101228
  Transmission Date: 20110831
  Serious: Yes (Other)
  Sender: FDA-Public Use
  Company Number: US-PERRIGO-10US015937

PATIENT
  Sex: Female
  Weight: 55.782 kg

DRUGS (1)
  1. TIOCONAZOLE [Suspect]
     Indication: VAGINAL INFECTION
     Dosage: 1 APPLICATION, SINGLE
     Route: 067
     Dates: start: 20101223, end: 20101223

REACTIONS (7)
  - EYE SWELLING [None]
  - HYPERSENSITIVITY [None]
  - URTICARIA [None]
  - PRURITUS [None]
  - FACE OEDEMA [None]
  - VULVOVAGINAL SWELLING [None]
  - DYSURIA [None]
